FAERS Safety Report 24664441 (Version 1)
Quarter: 2024Q4

REPORT INFORMATION
  Report Type: Spontaneous
  Country: US (occurrence: None)
  Receive Date: 20241125
  Receipt Date: 20241125
  Transmission Date: 20250115
  Serious: Yes (Hospitalization)
  Sender: Public
  Company Number: None

PATIENT
  Age: 74 Year
  Sex: Male
  Weight: 106 kg

DRUGS (2)
  1. PEMBROLIZUMAB [Suspect]
     Active Substance: PEMBROLIZUMAB
     Indication: Neoplasm prophylaxis
     Dosage: FREQUENCY : EVERY THREE WEEKS;?
     Dates: start: 20240620
  2. OLAPARIB [Suspect]
     Active Substance: OLAPARIB
     Dosage: FREQUENCY : DAILY;?
     Route: 048
     Dates: start: 20240620

REACTIONS (3)
  - Urinary tract infection [None]
  - Penile pain [None]
  - Pseudomonas test positive [None]

NARRATIVE: CASE EVENT DATE: 20240729
